FAERS Safety Report 9678765 (Version 1)
Quarter: 2013Q4

REPORT INFORMATION
  Report Type: Spontaneous
  Country: JP (occurrence: JP)
  Receive Date: 20131108
  Receipt Date: 20131108
  Transmission Date: 20140711
  Serious: Yes (Other)
  Sender: FDA-Public Use
  Company Number: JP-ELI_LILLY_AND_COMPANY-JP201309006572

PATIENT
  Age: 65 Year
  Sex: Female

DRUGS (8)
  1. EVISTA [Suspect]
     Indication: PRODUCT USED FOR UNKNOWN INDICATION
     Dosage: UNK
     Route: 048
  2. AMARYL [Concomitant]
     Dosage: 1 MG, UNK
  3. KINEDAK [Concomitant]
     Dosage: UNK
     Route: 048
  4. METHYCOBAL [Concomitant]
     Dosage: UNK
     Route: 048
  5. GLACTIV [Concomitant]
     Dosage: 1 DF, QD
     Route: 048
  6. ATORVASTATIN [Concomitant]
     Dosage: UNK, QD
     Route: 048
  7. CALFINA [Concomitant]
     Dosage: 0.5 UG, QD
     Route: 048
  8. METFORMIN HYDROCHLORIDE [Concomitant]
     Dosage: UNK
     Route: 048

REACTIONS (1)
  - Hepatic function abnormal [Unknown]
